FAERS Safety Report 5963395-3 (Version None)
Quarter: 2008Q4

REPORT INFORMATION
  Report Type: 
  Country: None (occurrence: None)
  Receive Date: 20081124
  Receipt Date: 20081119
  Transmission Date: 20090506
  Serious: Yes (Other)
  Sender: FDA-Public Use
  Company Number: B0547496A

PATIENT
  Sex: Female

DRUGS (1)
  1. AUGMENTIN '125' [Suspect]
     Indication: DRUG USE FOR UNKNOWN INDICATION
     Route: 048
     Dates: start: 20080807, end: 20080807

REACTIONS (4)
  - HYPOAESTHESIA ORAL [None]
  - ORAL DISCOMFORT [None]
  - THROAT IRRITATION [None]
  - TONGUE OEDEMA [None]
